FAERS Safety Report 15329341 (Version 1)
Quarter: 2018Q3

REPORT INFORMATION
  Report Type: Report from Study
  Country: CA (occurrence: CA)
  Receive Date: 20180829
  Receipt Date: 20180829
  Transmission Date: 20181010
  Serious: Yes (Hospitalization, Other)
  Sender: FDA-Public Use
  Company Number: CA-GLAXOSMITHKLINE-CA2018GSK154329

PATIENT
  Age: 65 Year
  Sex: Female

DRUGS (4)
  1. VENTOLIN [Suspect]
     Active Substance: ALBUTEROL SULFATE
     Indication: PRODUCT USED FOR UNKNOWN INDICATION
     Dosage: UNK UNK, TID
  2. SYMBICORT [Suspect]
     Active Substance: BUDESONIDE\FORMOTEROL FUMARATE DIHYDRATE
     Indication: PRODUCT USED FOR UNKNOWN INDICATION
     Dosage: 100 MG, TID
  3. SEEBRI [Suspect]
     Active Substance: GLYCOPYRRONIUM
     Indication: PRODUCT USED FOR UNKNOWN INDICATION
     Dosage: UNK
  4. FLUTICASONE PROPIONATE+SALMETEROL XINAFOATE [Suspect]
     Active Substance: FLUTICASONE PROPIONATE\SALMETEROL XINAFOATE
     Indication: PRODUCT USED FOR UNKNOWN INDICATION
     Dosage: UNK

REACTIONS (9)
  - Hypoventilation [Unknown]
  - Angiopathy [Unknown]
  - Ill-defined disorder [Unknown]
  - Dyspnoea [Unknown]
  - Empyema [Unknown]
  - Blood count abnormal [Unknown]
  - Productive cough [Unknown]
  - Pneumonia [Unknown]
  - Staphylococcal infection [Unknown]

NARRATIVE: CASE EVENT DATE: 20161223
